FAERS Safety Report 7133674-5 (Version None)
Quarter: 2010Q4

REPORT INFORMATION
  Report Type: 
  Country: None (occurrence: None)
  Receive Date: 20101202
  Receipt Date: 20071212
  Transmission Date: 20110411
  Serious: Yes (Other)
  Sender: FDA-Public Use
  Company Number: US-BAYER-US-2006-018363

PATIENT

DRUGS (14)
  1. CLIMARA [Suspect]
     Indication: HORMONE REPLACEMENT THERAPY
     Dosage: .05 MG/D, CONT
     Route: 062
     Dates: start: 19960101, end: 20021201
  2. ESTROGENS CONJUGATED [Suspect]
     Indication: HORMONE REPLACEMENT THERAPY
     Dosage: UNK, UNK
     Dates: start: 19860101, end: 19930101
  3. MEDROXYPROGESTERONE ACETATE [Suspect]
     Indication: HORMONE REPLACEMENT THERAPY
     Dosage: DAILY DOSE 2.5 MG
     Dates: start: 19860101, end: 20021201
  4. MENEST [Suspect]
     Indication: HORMONE REPLACEMENT THERAPY
     Dosage: .625 MG, UNK
     Dates: start: 19940101, end: 19950101
  5. MEDROXYPROGESTERONE ACETATE [Suspect]
     Dosage: 5 MG, UNK
     Dates: start: 19860101, end: 20021201
  6. ESTRADERM [Suspect]
     Indication: HORMONE REPLACEMENT THERAPY
     Dosage: 0.05
     Route: 062
     Dates: start: 19950915
  7. COMBIPATCH [Suspect]
     Indication: HORMONE REPLACEMENT THERAPY
     Dates: start: 19990413
  8. IBUPROFEN [Concomitant]
     Route: 048
  9. MEDROL [Concomitant]
     Route: 048
     Dates: start: 19960314
  10. DIAZEPAM [Concomitant]
  11. EFUDEX [Concomitant]
  12. TOBRADEX [Concomitant]
  13. UNCODEABLE ^UNCLASSIFIABLE^ [Concomitant]
  14. IMIPRAMINE [Concomitant]

REACTIONS (2)
  - BREAST CANCER FEMALE [None]
  - SQUAMOUS CELL CARCINOMA OF SKIN [None]
